FAERS Safety Report 17837204 (Version 1)
Quarter: 2020Q2

REPORT INFORMATION
  Report Type: Spontaneous
  Country: UA (occurrence: UA)
  Receive Date: 20200528
  Receipt Date: 20200528
  Transmission Date: 20200714
  Serious: Yes (Other)
  Sender: FDA-Public Use
  Company Number: NVSC2020UA144519

PATIENT
  Age: 68 Year
  Sex: Male

DRUGS (4)
  1. CEFMA [CEFPODOXIME PROXETIL] [Suspect]
     Active Substance: CEFPODOXIME PROXETIL
     Indication: BRONCHITIS
     Dosage: 200 MG, QD
     Route: 048
  2. ENALAPRIL [Concomitant]
     Active Substance: ENALAPRIL
     Indication: PRODUCT USED FOR UNKNOWN INDICATION
     Route: 048
  3. CLOPIDOGREL [Suspect]
     Active Substance: CLOPIDOGREL BISULFATE
     Indication: PRODUCT USED FOR UNKNOWN INDICATION
     Route: 048
  4. BISOPROLOL [Concomitant]
     Active Substance: BISOPROLOL
     Indication: PRODUCT USED FOR UNKNOWN INDICATION
     Route: 048

REACTIONS (3)
  - Haematemesis [Recovering/Resolving]
  - Diarrhoea haemorrhagic [Recovering/Resolving]
  - Nausea [Recovering/Resolving]
